FAERS Safety Report 18199014 (Version 4)
Quarter: 2020Q4

REPORT INFORMATION
  Report Type: Report from Study
  Country: US (occurrence: US)
  Receive Date: 20200826
  Receipt Date: 20201202
  Transmission Date: 20210113
  Serious: No
  Sender: FDA-Public Use
  Company Number: NVSC2020US235576

PATIENT
  Sex: Male

DRUGS (6)
  1. ENTRESTO [Suspect]
     Active Substance: SACUBITRIL\VALSARTAN
     Route: 048
  2. ENTRESTO [Suspect]
     Active Substance: SACUBITRIL\VALSARTAN
     Indication: PRODUCT USED FOR UNKNOWN INDICATION
     Dosage: UNK UNK, BID
     Route: 048
  3. ENTRESTO [Suspect]
     Active Substance: SACUBITRIL\VALSARTAN
     Route: 048
  4. COREG [Concomitant]
     Active Substance: CARVEDILOL
     Indication: PRODUCT USED FOR UNKNOWN INDICATION
     Dosage: UNK
     Route: 065
  5. METOPROLOL. [Concomitant]
     Active Substance: METOPROLOL
     Indication: PRODUCT USED FOR UNKNOWN INDICATION
     Dosage: UNK
     Route: 065
  6. ENTRESTO [Suspect]
     Active Substance: SACUBITRIL\VALSARTAN
     Route: 048

REACTIONS (13)
  - Hypertension [Unknown]
  - Fatigue [Unknown]
  - Ejection fraction abnormal [Unknown]
  - Nervousness [Unknown]
  - Arthropathy [Unknown]
  - Depression [Unknown]
  - Oropharyngeal pain [Recovered/Resolved]
  - Headache [Unknown]
  - Hypotension [Unknown]
  - Amnesia [Unknown]
  - Gastrooesophageal reflux disease [Unknown]
  - Eating disorder [Unknown]
  - Anxiety [Unknown]
